FAERS Safety Report 12353800 (Version 1)
Quarter: 2016Q2

REPORT INFORMATION
  Report Type: Spontaneous
  Country: US (occurrence: US)
  Receive Date: 20160511
  Receipt Date: 20160511
  Transmission Date: 20160815
  Serious: Yes (Hospitalization, Other)
  Sender: FDA-Public Use
  Company Number: US-AMGEN-USASP2016057395

PATIENT
  Age: 55 Year
  Sex: Female
  Weight: 95.71 kg

DRUGS (11)
  1. XELJANZ [Suspect]
     Active Substance: TOFACITINIB CITRATE
     Indication: RHEUMATOID ARTHRITIS
     Dosage: 5 MG, BID
     Route: 065
     Dates: start: 201601
  2. ARAVA [Suspect]
     Active Substance: LEFLUNOMIDE
     Indication: RHEUMATOID ARTHRITIS
     Dosage: UNK
     Route: 065
     Dates: end: 2014
  3. PANTOPRAZOLE SODIUM. [Concomitant]
     Active Substance: PANTOPRAZOLE SODIUM
     Indication: GASTRITIS
     Dosage: 40 MG, ONCE A DAY 30 MINUTES BEFORE EATING
     Dates: start: 2013
  4. AMITRIPTYLINE [Suspect]
     Active Substance: AMITRIPTYLINE
     Indication: FIBROMYALGIA
     Dosage: 25 MG, ONCE AT NIGHT
     Route: 065
     Dates: start: 2013, end: 2015
  5. NAPROXEN. [Concomitant]
     Active Substance: NAPROXEN
     Indication: RHEUMATOID ARTHRITIS
     Dosage: 500 MG, TWICE A DAY
     Dates: start: 201506
  6. SULFASALAZINE. [Suspect]
     Active Substance: SULFASALAZINE
     Indication: RHEUMATOID ARTHRITIS
     Dosage: UNK
     Route: 065
     Dates: end: 2014
  7. ENBREL [Suspect]
     Active Substance: ETANERCEPT
     Indication: RHEUMATOID ARTHRITIS
     Dosage: UNK
     Route: 065
     Dates: end: 2014
  8. METHOTREXATE [Suspect]
     Active Substance: METHOTREXATE
     Indication: RHEUMATOID ARTHRITIS
     Dosage: UNK
     Route: 065
     Dates: end: 2014
  9. AMITRIPTYLINE [Suspect]
     Active Substance: AMITRIPTYLINE
     Indication: SLEEP DISORDER
  10. DOXYCYCLINE HYCLATE. [Concomitant]
     Active Substance: DOXYCYCLINE HYCLATE
     Indication: DRY EYE
     Dosage: 100 MG, BID
     Dates: start: 201604
  11. HERBALIFE [Concomitant]
     Indication: WEIGHT FLUCTUATION
     Dosage: UNK

REACTIONS (13)
  - Anxiety [Recovering/Resolving]
  - Rheumatoid arthritis [Not Recovered/Not Resolved]
  - Nervousness [Recovering/Resolving]
  - Dry eye [Not Recovered/Not Resolved]
  - Hypersensitivity [Unknown]
  - Gastritis [Unknown]
  - Sleep disorder [Unknown]
  - Adverse drug reaction [Unknown]
  - Weight fluctuation [Recovering/Resolving]
  - Fibromyalgia [Unknown]
  - Abdominal pain upper [Unknown]
  - Gait disturbance [Unknown]
  - Gastric disorder [Unknown]

NARRATIVE: CASE EVENT DATE: 2013
